FAERS Safety Report 14846322 (Version 1)
Quarter: 2018Q2

REPORT INFORMATION
  Report Type: Spontaneous
  Country: US (occurrence: US)
  Receive Date: 20180419
  Receipt Date: 20180419
  Transmission Date: 20180711
  Serious: Yes (Other)
  Sender: FDA-Public Use
  Company Number: None

PATIENT
  Age: 59 Year
  Sex: Male
  Weight: 80.74 kg

DRUGS (1)
  1. TENOFOVIR 300 MG [Suspect]
     Active Substance: TENOFOVIR
     Indication: HEPATITIS B
     Route: 048
     Dates: start: 201711, end: 201804

REACTIONS (1)
  - Dizziness [None]

NARRATIVE: CASE EVENT DATE: 20180405
